FAERS Safety Report 6642200-6 (Version None)
Quarter: 2010Q1

REPORT INFORMATION
  Report Type: 
  Country: None (occurrence: None)
  Receive Date: 20100319
  Receipt Date: 20100308
  Transmission Date: 20100710
  Serious: Yes (Other)
  Sender: FDA-Public Use
  Company Number: JP-PFIZER INC-2010023778

PATIENT
  Age: 70 Year
  Sex: Female

DRUGS (4)
  1. DETRUSITOL [Suspect]
     Indication: HYPERTONIC BLADDER
     Dosage: 4 MG/DAY
     Route: 048
     Dates: start: 20100206, end: 20100201
  2. HOLIN-V [Suspect]
     Dosage: 1 TAB/DAY, EVERY OTHER DAY
     Route: 067
     Dates: start: 20100206
  3. ALFACALCIDOL [Concomitant]
     Dosage: UNK
  4. METHYCOBAL [Concomitant]
     Dosage: UNK

REACTIONS (1)
  - BLOOD PRESSURE DECREASED [None]
